FAERS Safety Report 8486886-2 (Version None)
Quarter: 2012Q3

REPORT INFORMATION
  Report Type: 
  Country: None (occurrence: None)
  Receive Date: 20120704
  Receipt Date: 20120629
  Transmission Date: 20120928
  Serious: Yes (Other)
  Sender: FDA-Public Use
  Company Number: NL-AMGEN-NLDSP2012040460

PATIENT
  Sex: Female

DRUGS (4)
  1. TAXOTERE [Concomitant]
     Indication: NEOPLASM MALIGNANT
  2. NEULASTA [Suspect]
     Indication: CHEMOTHERAPY
     Dosage: UNK
     Dates: start: 20120620
  3. ADRIAMYCIN PFS [Concomitant]
     Indication: NEOPLASM MALIGNANT
  4. CYCLOPHOSPHAMIDE [Concomitant]
     Indication: NEOPLASM MALIGNANT

REACTIONS (3)
  - ABDOMINAL PAIN [None]
  - BACK PAIN [None]
  - PANCREATITIS [None]
